FAERS Safety Report 13408893 (Version 3)
Quarter: 2018Q1

REPORT INFORMATION
  Report Type: Spontaneous
  Country: US (occurrence: US)
  Receive Date: 20170406
  Receipt Date: 20180312
  Transmission Date: 20180508
  Serious: No
  Sender: FDA-Public Use
  Company Number: US-JNJFOC-20170224866

PATIENT
  Sex: Male

DRUGS (35)
  1. RISPERDAL [Suspect]
     Active Substance: RISPERIDONE
     Indication: DEPRESSION
     Route: 048
     Dates: start: 20020912
  2. RISPERDAL [Suspect]
     Active Substance: RISPERIDONE
     Indication: SUBSTANCE ABUSE
     Route: 048
     Dates: start: 20041007, end: 20041118
  3. RISPERIDONE. [Suspect]
     Active Substance: RISPERIDONE
     Indication: SUBSTANCE ABUSE
     Route: 048
     Dates: start: 20030911
  4. RISPERDAL [Suspect]
     Active Substance: RISPERIDONE
     Indication: CONDUCT DISORDER
     Route: 048
     Dates: start: 20020912
  5. RISPERDAL [Suspect]
     Active Substance: RISPERIDONE
     Indication: ENCOPRESIS
     Dosage: VARYING DOSES OF 0.5 MG AND 1 MG
     Route: 048
     Dates: start: 20020919, end: 20031211
  6. RISPERDAL [Suspect]
     Active Substance: RISPERIDONE
     Indication: CONDUCT DISORDER
     Route: 048
     Dates: start: 20041007, end: 20041118
  7. RISPERDAL [Suspect]
     Active Substance: RISPERIDONE
     Indication: CONDUCT DISORDER
     Route: 048
     Dates: start: 20050414, end: 20050630
  8. RISPERDAL [Suspect]
     Active Substance: RISPERIDONE
     Indication: DEPRESSION
     Route: 048
     Dates: start: 20050414, end: 20050630
  9. RISPERDAL [Suspect]
     Active Substance: RISPERIDONE
     Indication: ATTENTION DEFICIT/HYPERACTIVITY DISORDER
     Route: 048
     Dates: start: 2004, end: 2006
  10. RISPERDAL [Suspect]
     Active Substance: RISPERIDONE
     Indication: SUBSTANCE ABUSE
     Route: 048
     Dates: start: 2004, end: 2006
  11. RISPERIDONE. [Suspect]
     Active Substance: RISPERIDONE
     Indication: CONDUCT DISORDER
     Route: 048
     Dates: start: 20030911
  12. RISPERIDONE. [Suspect]
     Active Substance: RISPERIDONE
     Indication: CYCLOTHYMIC DISORDER
     Route: 048
     Dates: start: 20030911
  13. RISPERDAL [Suspect]
     Active Substance: RISPERIDONE
     Indication: ATTENTION DEFICIT/HYPERACTIVITY DISORDER
     Route: 048
     Dates: start: 20020912
  14. RISPERDAL [Suspect]
     Active Substance: RISPERIDONE
     Indication: CYCLOTHYMIC DISORDER
     Route: 048
     Dates: start: 20050414, end: 20050630
  15. RISPERDAL [Suspect]
     Active Substance: RISPERIDONE
     Indication: CYCLOTHYMIC DISORDER
     Route: 048
     Dates: start: 20020912
  16. RISPERDAL [Suspect]
     Active Substance: RISPERIDONE
     Indication: ENCOPRESIS
     Route: 048
     Dates: start: 20020912
  17. RISPERDAL [Suspect]
     Active Substance: RISPERIDONE
     Indication: DEPRESSION
     Dosage: VARYING DOSES OF 0.5 MG AND 1 MG
     Route: 048
     Dates: start: 20020919, end: 20031211
  18. RISPERDAL [Suspect]
     Active Substance: RISPERIDONE
     Indication: CYCLOTHYMIC DISORDER
     Route: 048
     Dates: start: 2004, end: 2006
  19. RISPERDAL [Suspect]
     Active Substance: RISPERIDONE
     Indication: ATTENTION DEFICIT/HYPERACTIVITY DISORDER
     Route: 048
     Dates: start: 20041007, end: 20041118
  20. RISPERDAL [Suspect]
     Active Substance: RISPERIDONE
     Indication: CYCLOTHYMIC DISORDER
     Route: 048
     Dates: start: 20041007, end: 20041118
  21. RISPERDAL [Suspect]
     Active Substance: RISPERIDONE
     Indication: ATTENTION DEFICIT/HYPERACTIVITY DISORDER
     Route: 048
     Dates: start: 20050414, end: 20050630
  22. RISPERDAL [Suspect]
     Active Substance: RISPERIDONE
     Indication: SUBSTANCE ABUSE
     Route: 048
     Dates: start: 20050414, end: 20050630
  23. RISPERDAL [Suspect]
     Active Substance: RISPERIDONE
     Indication: CONDUCT DISORDER
     Route: 048
     Dates: start: 2004, end: 2006
  24. RISPERDAL [Suspect]
     Active Substance: RISPERIDONE
     Indication: ENCOPRESIS
     Route: 048
     Dates: start: 2004, end: 2006
  25. RISPERIDONE. [Suspect]
     Active Substance: RISPERIDONE
     Indication: ATTENTION DEFICIT/HYPERACTIVITY DISORDER
     Route: 048
     Dates: start: 20030911
  26. RISPERDAL [Suspect]
     Active Substance: RISPERIDONE
     Indication: ATTENTION DEFICIT/HYPERACTIVITY DISORDER
     Dosage: VARYING DOSES OF 0.5 MG AND 1 MG
     Route: 048
     Dates: start: 20020919, end: 20031211
  27. RISPERDAL [Suspect]
     Active Substance: RISPERIDONE
     Indication: CYCLOTHYMIC DISORDER
     Dosage: VARYING DOSES OF 0.5 MG AND 1 MG
     Route: 048
     Dates: start: 20020919, end: 20031211
  28. RISPERDAL [Suspect]
     Active Substance: RISPERIDONE
     Indication: DEPRESSION
     Route: 048
     Dates: start: 2004, end: 2006
  29. RISPERDAL [Suspect]
     Active Substance: RISPERIDONE
     Indication: SUBSTANCE ABUSE
     Route: 048
     Dates: start: 20020912
  30. RISPERDAL [Suspect]
     Active Substance: RISPERIDONE
     Indication: CONDUCT DISORDER
     Dosage: VARYING DOSES OF 0.5 MG AND 1 MG
     Route: 048
     Dates: start: 20020919, end: 20031211
  31. RISPERDAL [Suspect]
     Active Substance: RISPERIDONE
     Indication: SUBSTANCE ABUSE
     Dosage: VARYING DOSES OF 0.5 MG AND 1 MG
     Route: 048
     Dates: start: 20020919, end: 20031211
  32. RISPERDAL [Suspect]
     Active Substance: RISPERIDONE
     Indication: ENCOPRESIS
     Route: 048
     Dates: start: 20041007, end: 20041118
  33. RISPERDAL [Suspect]
     Active Substance: RISPERIDONE
     Indication: DEPRESSION
     Route: 048
     Dates: start: 20041007, end: 20041118
  34. RISPERDAL [Suspect]
     Active Substance: RISPERIDONE
     Indication: ENCOPRESIS
     Route: 048
     Dates: start: 20050414, end: 20050630
  35. RISPERIDONE. [Suspect]
     Active Substance: RISPERIDONE
     Indication: ENCOPRESIS
     Route: 048
     Dates: start: 20030911

REACTIONS (2)
  - Emotional distress [Unknown]
  - Gynaecomastia [Unknown]
